FAERS Safety Report 18866943 (Version 3)
Quarter: 2021Q4

REPORT INFORMATION
  Report Type: Spontaneous
  Country: US (occurrence: US)
  Receive Date: 20210209
  Receipt Date: 20211118
  Transmission Date: 20220303
  Serious: No
  Sender: FDA-Public Use
  Company Number: US-SA-SAC20210202000629

PATIENT
  Age: 60 Year
  Sex: Male

DRUGS (3)
  1. CAPRELSA [Suspect]
     Active Substance: VANDETANIB
     Indication: Thyroid cancer
     Dosage: 300 MG, QD
     Route: 048
     Dates: start: 20190222
  2. CAPRELSA [Suspect]
     Active Substance: VANDETANIB
     Dosage: 200 MG FOR 1 MONTH
     Route: 065
  3. CAPRELSA [Suspect]
     Active Substance: VANDETANIB
     Dosage: 300 MG, QD
     Route: 048

REACTIONS (6)
  - Skin exfoliation [Unknown]
  - Diarrhoea [Unknown]
  - Dry skin [Unknown]
  - Intentional product use issue [Unknown]
  - Intentional product misuse [Unknown]
  - Product availability issue [Unknown]
